FAERS Safety Report 24830122 (Version 1)
Quarter: 2025Q1

REPORT INFORMATION
  Report Type: Spontaneous
  Country: US (occurrence: US)
  Receive Date: 20250110
  Receipt Date: 20250110
  Transmission Date: 20250409
  Serious: No
  Sender: ABBVIE
  Company Number: US-ABBVIE-6075009

PATIENT
  Sex: Female

DRUGS (3)
  1. LEXAPRO [Suspect]
     Active Substance: ESCITALOPRAM OXALATE
     Indication: Product used for unknown indication
     Route: 065
  2. PREDNISONE [Interacting]
     Active Substance: PREDNISONE
     Indication: Product used for unknown indication
     Route: 065
  3. VELSIPITY [Interacting]
     Active Substance: ETRASIMOD ARGININE
     Indication: Product used for unknown indication
     Dosage: FORM STRENGTH 2 MG
     Route: 065

REACTIONS (1)
  - Drug interaction [Unknown]
